FAERS Safety Report 9496773 (Version 2)
Quarter: 2013Q3

REPORT INFORMATION
  Report Type: Spontaneous
  Country: NO (occurrence: NO)
  Receive Date: 20130904
  Receipt Date: 20130906
  Transmission Date: 20140515
  Serious: Yes (Hospitalization, Other)
  Sender: FDA-Public Use
  Company Number: NO-PFIZER INC-2013253088

PATIENT
  Age: 64 Year
  Sex: Male

DRUGS (16)
  1. CHAMPIX [Suspect]
     Indication: SMOKING CESSATION THERAPY
     Dosage: 0.5 MG, UNK
     Route: 048
     Dates: start: 201305, end: 20130804
  2. SIMVASTATIN [Concomitant]
     Indication: BLOOD CHOLESTEROL INCREASED
     Dosage: 40 MG, 1X/DAY
     Route: 048
  3. SOBRIL [Concomitant]
     Dosage: 10 MG, AS NECESSARY
     Route: 048
  4. ALBYL-E [Concomitant]
     Dosage: 75 MG, 1X/DAY
     Route: 048
  5. ACETYLCYSTEINE SANDOZ [Concomitant]
     Dosage: 2-3 TABLETS A 200 MG 2-3 TIMES A DAY
     Route: 048
  6. ORUDIS [Concomitant]
     Dosage: UNK
     Route: 061
  7. AMLODIPIN ACTAVIS [Concomitant]
     Dosage: 10 MG, 1X/DAY
     Route: 048
  8. NITROGLYCERIN NYCOMED [Concomitant]
     Indication: CHEST PAIN
     Dosage: 0.25 MG, AS NECESSARY
     Route: 060
  9. PARACET [Concomitant]
     Indication: PAIN
     Dosage: 1 G, 3X/DAY
     Route: 048
  10. ATARAX [Concomitant]
     Dosage: 25 MG, 1X/DAY AT NIGHT
     Route: 048
  11. APOLAR [Concomitant]
     Dosage: UNK
     Route: 061
  12. SELO-ZOK [Concomitant]
     Dosage: 50 MG, 1X/DAY
     Route: 048
  13. CIPRALEX [Concomitant]
     Dosage: 5 MG, 2X/DAY
     Route: 048
  14. IBARIL [Concomitant]
     Dosage: UNK
     Route: 061
  15. EZETROL [Concomitant]
     Dosage: 10 MG, 1X/DAY
     Route: 048
  16. PLAVIX [Concomitant]
     Dosage: 75 MG, 1X/DAY
     Route: 048

REACTIONS (5)
  - Tremor [Recovered/Resolved]
  - Convulsion [Recovered/Resolved]
  - Hypotonia [Recovered/Resolved]
  - Fatigue [Recovered/Resolved]
  - Hypersomnia [Recovered/Resolved]
